FAERS Safety Report 23458362 (Version 1)
Quarter: 2024Q1

REPORT INFORMATION
  Report Type: Spontaneous
  Country: US (occurrence: US)
  Receive Date: 20240130
  Receipt Date: 20240130
  Transmission Date: 20240409
  Serious: Yes (Other)
  Sender: FDA-Public Use
  Company Number: US-SMITH AND NEPHEW, INC-2024SMT00013

PATIENT
  Age: 62 Year
  Sex: Male

DRUGS (1)
  1. COLLAGENASE CLOSTRIDIUM HISTOLYTICUM [Suspect]
     Active Substance: COLLAGENASE CLOSTRIDIUM HISTOLYTICUM
     Indication: Peyronie^s disease
     Dosage: 12 INTRALESIONAL INJECTIONS

REACTIONS (2)
  - Fracture of penis [Unknown]
  - Off label use [Unknown]
